FAERS Safety Report 23019982 (Version 2)
Quarter: 2023Q4

REPORT INFORMATION
  Report Type: Spontaneous
  Country: US (occurrence: US)
  Receive Date: 20231003
  Receipt Date: 20231012
  Transmission Date: 20240110
  Serious: No
  Sender: FDA-Public Use
  Company Number: US-LUPIN PHARMACEUTICALS INC.-2023-08361

PATIENT

DRUGS (1)
  1. ALBUTEROL SULFATE [Suspect]
     Active Substance: ALBUTEROL SULFATE
     Indication: Asthma
     Dosage: UNK, PRN,  2 PUFFS TWICE A DAY AS NEEDED
     Dates: start: 20230822

REACTIONS (3)
  - Wrong technique in product usage process [Unknown]
  - Product packaging quantity issue [Unknown]
  - No adverse event [Unknown]
